FAERS Safety Report 9270254 (Version 1)
Quarter: 2013Q2

REPORT INFORMATION
  Report Type: Spontaneous
  Country: US (occurrence: US)
  Receive Date: 20130503
  Receipt Date: 20130503
  Transmission Date: 20140414
  Serious: No
  Sender: FDA-Public Use
  Company Number: US-PFIZER INC-2012308113

PATIENT
  Age: 72 Year
  Sex: Female
  Weight: 86.17 kg

DRUGS (2)
  1. CELEBREX [Suspect]
     Indication: ARTHRALGIA
     Dosage: 200 MG, ONCE A DAY
     Route: 048
     Dates: end: 201201
  2. CELEBREX [Suspect]
     Dosage: 200 MG, TWICE A DAY
     Route: 048
     Dates: start: 201201, end: 201304

REACTIONS (2)
  - Arthropathy [Unknown]
  - Pain [Unknown]
